FAERS Safety Report 13181752 (Version 4)
Quarter: 2017Q3

REPORT INFORMATION
  Report Type: Spontaneous
  Country: US (occurrence: US)
  Receive Date: 20170202
  Receipt Date: 20170728
  Transmission Date: 20171127
  Serious: Yes (Hospitalization)
  Sender: FDA-Public Use
  Company Number: US-ACTELION-A-US2017-149411

PATIENT
  Age: 66 Year
  Sex: Female

DRUGS (8)
  1. OXYGEN. [Concomitant]
     Active Substance: OXYGEN
     Dosage: UNK, CONT INFUS
  2. AMLODIPINE [Concomitant]
     Active Substance: AMLODIPINE BESYLATE
  3. OPSUMIT [Suspect]
     Active Substance: MACITENTAN
     Indication: PULMONARY HYPERTENSION
     Dosage: 10 MG, UNK
     Route: 048
     Dates: start: 20150603
  4. LANTUS [Concomitant]
     Active Substance: INSULIN GLARGINE
     Dosage: 55 U, QD
     Dates: start: 2014
  5. ADCIRCA [Concomitant]
     Active Substance: TADALAFIL
  6. GABAPENTIN. [Concomitant]
     Active Substance: GABAPENTIN
     Dosage: 300 MG, QHS
     Dates: start: 20151229
  7. TOPROL XL [Concomitant]
     Active Substance: METOPROLOL SUCCINATE
     Dosage: 50 MG, QD
     Dates: start: 20160906
  8. HYZAAR [Concomitant]
     Active Substance: HYDROCHLOROTHIAZIDE\LOSARTAN POTASSIUM
     Dosage: 100 - 12.5

REACTIONS (6)
  - Dizziness [Recovering/Resolving]
  - Palpitations [Recovering/Resolving]
  - Bradycardia [Recovering/Resolving]
  - Nausea [Unknown]
  - Sciatica [Unknown]
  - Diarrhoea [Unknown]
